FAERS Safety Report 4954794-7 (Version None)
Quarter: 2006Q1

REPORT INFORMATION
  Report Type: 
  Country: None (occurrence: None)
  Receive Date: 20060327
  Receipt Date: 20050422
  Transmission Date: 20060701
  Serious: Yes (Death, Hospitalization)
  Sender: FDA-Public Use
  Company Number: US-MERCK-0504USA04462

PATIENT
  Age: 59 Year
  Sex: Male
  Weight: 91 kg

DRUGS (1)
  1. VIOXX [Suspect]
     Indication: ARTHRITIS
     Route: 048
     Dates: start: 20000522, end: 20000818

REACTIONS (5)
  - CHRONIC OBSTRUCTIVE PULMONARY DISEASE [None]
  - ISCHAEMIC STROKE [None]
  - NEUTROPENIC SEPSIS [None]
  - PENIS CARCINOMA METASTATIC [None]
  - SLEEP APNOEA SYNDROME [None]
